FAERS Safety Report 22167079 (Version 1)
Quarter: 2023Q1

REPORT INFORMATION
  Report Type: Spontaneous
  Country: US (occurrence: None)
  Receive Date: 20230331
  Receipt Date: 20230331
  Transmission Date: 20230418
  Serious: Yes (Death)
  Sender: FDA-Public Use
  Company Number: None

PATIENT
  Age: 71 Year
  Sex: Male
  Weight: 74.53 kg

DRUGS (23)
  1. SORAFENIB [Suspect]
     Active Substance: SORAFENIB
     Indication: Lung neoplasm malignant
     Dosage: FREQUENCY : TWICE A DAY;?
     Route: 048
  2. ACETAMINOPHEN\CODEINE PHOSPHATE [Concomitant]
     Active Substance: ACETAMINOPHEN\CODEINE PHOSPHATE
  3. ASPIRIN [Concomitant]
  4. CARAFATE [Concomitant]
     Active Substance: SUCRALFATE
  5. FENIFBRATE [Concomitant]
  6. FERROUS SULFATE [Concomitant]
     Active Substance: FERROUS SULFATE
  7. FLUCTICASONE [Concomitant]
  8. GABAPENTIN [Concomitant]
  9. HUMALOG [Concomitant]
     Active Substance: INSULIN LISPRO
  10. ALBUTEROL\IPRATROPIUM [Concomitant]
     Active Substance: ALBUTEROL\IPRATROPIUM
  11. ISOSORBIDE [Concomitant]
     Active Substance: ISOSORBIDE
  12. LISINOPRIL [Concomitant]
  13. METFORMIN [Concomitant]
  14. METOPORLOL [Concomitant]
  15. NITROSTAT [Concomitant]
     Active Substance: NITROGLYCERIN
  16. OMEPRAZOLE [Concomitant]
     Active Substance: OMEPRAZOLE
  17. OXYCODONE [Concomitant]
     Active Substance: OXYCODONE
  18. PLAVIX [Concomitant]
     Active Substance: CLOPIDOGREL BISULFATE
  19. ROSUVASTATIN [Concomitant]
  20. SYMBICORT [Concomitant]
     Active Substance: BUDESONIDE\FORMOTEROL FUMARATE DIHYDRATE
  21. TRESIBA [Concomitant]
     Active Substance: INSULIN DEGLUDEC
  22. VENTOLIN [Concomitant]
  23. VITAMIN D3 [Concomitant]
     Active Substance: CHOLECALCIFEROL

REACTIONS (1)
  - Death [None]

NARRATIVE: CASE EVENT DATE: 20230317
